FAERS Safety Report 7779443-4 (Version None)
Quarter: 2011Q3

REPORT INFORMATION
  Report Type: 
  Country: None (occurrence: None)
  Receive Date: 20110927
  Receipt Date: 20110919
  Transmission Date: 20111222
  Serious: No
  Sender: FDA-Public Use
  Company Number: US-BIOGENIDEC-2011BI035973

PATIENT
  Age: 45 Year
  Sex: Female

DRUGS (3)
  1. TYSABRI [Suspect]
     Indication: MULTIPLE SCLEROSIS
     Route: 042
     Dates: start: 20110908
  2. TYSABRI [Suspect]
     Route: 042
     Dates: start: 20090224, end: 20091001
  3. TYSABRI [Suspect]
     Route: 042
     Dates: start: 20070529, end: 20080307

REACTIONS (1)
  - PRURITUS GENERALISED [None]
